FAERS Safety Report 9828293 (Version 2)
Quarter: 2014Q1

REPORT INFORMATION
  Report Type: Spontaneous
  Country: US (occurrence: US)
  Receive Date: 20140117
  Receipt Date: 20140117
  Transmission Date: 20141002
  Serious: Yes (Hospitalization)
  Sender: FDA-Public Use
  Company Number: US-B.I. PHARMACEUTICALS,INC./RIDGEFIELD-2013-BI-23193BP

PATIENT
  Age: 74 Year
  Sex: Male
  Weight: 99.79 kg

DRUGS (17)
  1. PRADAXA [Suspect]
     Dosage: 300 MG
     Route: 048
     Dates: start: 20110418, end: 20110512
  2. ACTOS [Concomitant]
     Dosage: 30 MG
     Route: 048
  3. ASPIRIN [Concomitant]
     Dosage: 81 MG
     Route: 048
  4. COLCHICINE [Concomitant]
     Indication: GOUT
     Route: 048
  5. FERRO-CYTE PLUS [Concomitant]
     Route: 048
  6. FLEXERIL [Concomitant]
     Indication: MUSCLE SPASMS
     Route: 048
  7. LORTAB [Concomitant]
     Indication: PAIN
     Route: 048
  8. MULTAQ [Concomitant]
     Dosage: 800 MG
     Route: 048
  9. PERCOCET [Concomitant]
     Indication: PAIN
     Route: 048
  10. PLAVIX [Concomitant]
     Dosage: 75 MG
     Route: 048
  11. SODIUM BICARBONATE [Concomitant]
     Dosage: 1300 MG
     Route: 048
  12. TOPROL XL [Concomitant]
     Dosage: 100 MG
     Route: 048
  13. ZETIA [Concomitant]
     Dosage: 10 MG
     Route: 048
  14. ZOCOR [Concomitant]
     Dosage: 80 MG
     Route: 048
  15. FAMOTIDINE [Concomitant]
     Dosage: 40 MG
     Route: 048
  16. FOLTX [Concomitant]
     Indication: HOMOCYSTINAEMIA
     Route: 048
  17. LOVAZA [Concomitant]
     Dosage: 4000 MG
     Route: 048

REACTIONS (6)
  - Gastrointestinal haemorrhage [Unknown]
  - Cerebrovascular accident [Unknown]
  - Anaemia [Unknown]
  - Renal failure acute [Unknown]
  - Haemorrhagic anaemia [Unknown]
  - Coagulopathy [Unknown]
